FAERS Safety Report 17607652 (Version 1)
Quarter: 2020Q2

REPORT INFORMATION
  Report Type: Spontaneous
  Country: US (occurrence: US)
  Receive Date: 20200401
  Receipt Date: 20200401
  Transmission Date: 20200713
  Serious: No
  Sender: FDA-Public Use
  Company Number: US-JNJFOC-20200244266

PATIENT
  Age: 80 Year
  Sex: Male
  Weight: 93.98 kg

DRUGS (1)
  1. TYLENOL [Suspect]
     Active Substance: ACETAMINOPHEN
     Indication: ARTHRALGIA
     Dosage: 1 OR 2 CAPLET ONCE A DAY, PRODUCT LAST ADMINISTRATION: 1 THIS MORNING A COUPLE WEEK AGO
     Route: 048

REACTIONS (2)
  - Dizziness [Recovered/Resolved]
  - Incorrect dose administered [Unknown]

NARRATIVE: CASE EVENT DATE: 202002
